FAERS Safety Report 18898873 (Version 1)
Quarter: 2021Q1

REPORT INFORMATION
  Report Type: Spontaneous
  Country: US (occurrence: US)
  Receive Date: 20210215
  Receipt Date: 20210215
  Transmission Date: 20210420
  Serious: No
  Sender: FDA-Public Use
  Company Number: None

PATIENT
  Age: 34 Year
  Sex: Female
  Weight: 69.75 kg

DRUGS (15)
  1. LEVOCARNITINE. [Concomitant]
     Active Substance: LEVOCARNITINE
  2. CHLORTHALIDONE. [Concomitant]
     Active Substance: CHLORTHALIDONE
  3. VALIUM [Concomitant]
     Active Substance: DIAZEPAM
  4. BACLOFEN. [Concomitant]
     Active Substance: BACLOFEN
  5. TRINTELLIX [Concomitant]
     Active Substance: VORTIOXETINE HYDROBROMIDE
  6. CURCUMIN [Concomitant]
     Active Substance: CURCUMIN
  7. ALEVE [Concomitant]
     Active Substance: NAPROXEN SODIUM
  8. WELLBUTRIN [Concomitant]
     Active Substance: BUPROPION HYDROCHLORIDE
  9. VIT D3 5000 [Concomitant]
  10. NOVOLOG [Concomitant]
     Active Substance: INSULIN ASPART
  11. PERCOCET [Concomitant]
     Active Substance: ACETAMINOPHEN\OXYCODONE HYDROCHLORIDE
  12. HIZENTRA [Suspect]
     Active Substance: HUMAN IMMUNOGLOBULIN G
     Indication: STIFF PERSON SYNDROME
     Route: 058
     Dates: start: 20200810
  13. CARNITOR [Concomitant]
     Active Substance: LEVOCARNITINE
  14. LACTULOSE. [Concomitant]
     Active Substance: LACTULOSE
  15. TURMERIC [Concomitant]
     Active Substance: HERBALS\TURMERIC

REACTIONS (6)
  - Diarrhoea [None]
  - Pain [None]
  - Pyrexia [None]
  - Vomiting [None]
  - Nausea [None]
  - Musculoskeletal stiffness [None]

NARRATIVE: CASE EVENT DATE: 20210212
